FAERS Safety Report 6601778-9 (Version None)
Quarter: 2010Q1

REPORT INFORMATION
  Report Type: 
  Country: None (occurrence: None)
  Receive Date: 20100218
  Receipt Date: 20100209
  Transmission Date: 20100710
  Serious: Yes (Other)
  Sender: FDA-Public Use
  Company Number: 2010US000418

PATIENT
  Age: 32 Year
  Sex: Female
  Weight: 58 kg

DRUGS (8)
  1. PROGRAF [Suspect]
     Indication: RENAL TRANSPLANT
  2. CELLCEPT [Concomitant]
  3. PREDNISONE TAB [Concomitant]
  4. DIOVAN [Concomitant]
  5. ALDOMET [Concomitant]
  6. LIPITOR [Concomitant]
  7. PRENATAL VITAMINS (MINERALS NOS) [Concomitant]
  8. FOLIC ACID [Concomitant]

REACTIONS (4)
  - DRUG EXPOSURE DURING PREGNANCY [None]
  - PREGNANCY [None]
  - PREMATURE SEPARATION OF PLACENTA [None]
  - STILLBIRTH [None]
